FAERS Safety Report 9974294 (Version 1)
Quarter: 2014Q1

REPORT INFORMATION
  Report Type: Report from Study
  Country: US (occurrence: US)
  Receive Date: 20140306
  Receipt Date: 20140306
  Transmission Date: 20141002
  Serious: No
  Sender: FDA-Public Use
  Company Number: US-ABBVIE-13P-163-1156918-00

PATIENT
  Age: 50 Year
  Sex: Male

DRUGS (1)
  1. HUMIRA [Suspect]
     Indication: RHEUMATOID ARTHRITIS
     Route: 058
     Dates: start: 20130813, end: 20130830

REACTIONS (7)
  - Feeling abnormal [Unknown]
  - Wheezing [Unknown]
  - Pyrexia [Unknown]
  - Disorientation [Unknown]
  - Memory impairment [Unknown]
  - Thinking abnormal [Unknown]
  - Influenza like illness [Unknown]
